FAERS Safety Report 23676086 (Version 3)
Quarter: 2024Q2

REPORT INFORMATION
  Report Type: Report from Study
  Country: US (occurrence: US)
  Receive Date: 20240327
  Receipt Date: 20240424
  Transmission Date: 20240716
  Serious: Yes (Other)
  Sender: FDA-Public Use
  Company Number: US-UCBSA-2023057825

PATIENT
  Sex: Male

DRUGS (1)
  1. BIMEKIZUMAB [Suspect]
     Active Substance: BIMEKIZUMAB
     Indication: Psoriasis
     Dosage: 320 MILLIGRAM, EV 4 WEEKS
     Route: 058
     Dates: start: 20231130, end: 20240308

REACTIONS (10)
  - Burn oral cavity [Not Recovered/Not Resolved]
  - Injection site pain [Recovered/Resolved]
  - Abnormal dreams [Recovered/Resolved]
  - Depression [Recovered/Resolved]
  - Oral candidiasis [Recovered/Resolved]
  - Hot flush [Recovered/Resolved]
  - Psoriasis [Recovered/Resolved]
  - Adverse reaction [Unknown]
  - Therapy interrupted [Unknown]
  - Product availability issue [Unknown]

NARRATIVE: CASE EVENT DATE: 20230101
